FAERS Safety Report 15486804 (Version 4)
Quarter: 2018Q4

REPORT INFORMATION
  Report Type: Spontaneous
  Country: JP (occurrence: JP)
  Receive Date: 20181011
  Receipt Date: 20181122
  Transmission Date: 20190205
  Serious: Yes (Hospitalization, Disabling, Other)
  Sender: FDA-Public Use
  Company Number: JP-ASTRAZENECA-2018SF18536

PATIENT
  Age: 75 Year
  Sex: Female
  Weight: 39 kg

DRUGS (6)
  1. GILOTRIF [Concomitant]
     Active Substance: AFATINIB
     Indication: NON-SMALL CELL LUNG CANCER
     Dosage: 30 MG DAILY
     Route: 048
     Dates: start: 20171205, end: 20180109
  2. BROTIZOLAM [Concomitant]
     Active Substance: BROTIZOLAM
     Indication: INSOMNIA
     Route: 048
  3. IRESSA [Suspect]
     Active Substance: GEFITINIB
     Indication: NON-SMALL CELL LUNG CANCER
     Route: 048
     Dates: start: 20170822, end: 20170912
  4. TAGRISSO [Suspect]
     Active Substance: OSIMERTINIB
     Indication: NON-SMALL CELL LUNG CANCER
     Route: 048
     Dates: start: 20180713, end: 20180909
  5. GILOTRIF [Concomitant]
     Active Substance: AFATINIB
     Indication: NON-SMALL CELL LUNG CANCER
     Dosage: 20 MG DAILY
     Route: 048
     Dates: start: 20180206, end: 20180628
  6. IRESSA [Suspect]
     Active Substance: GEFITINIB
     Indication: NON-SMALL CELL LUNG CANCER
     Route: 048
     Dates: start: 20170117, end: 20170612

REACTIONS (8)
  - Pleural effusion [Unknown]
  - Hepatic function abnormal [Recovering/Resolving]
  - Platelet count decreased [Recovered/Resolved]
  - Metastases to lung [Unknown]
  - Constipation [Recovering/Resolving]
  - Pneumothorax [Recovered/Resolved]
  - Malignant neoplasm progression [Unknown]
  - Pulmonary toxicity [Recovered/Resolved]

NARRATIVE: CASE EVENT DATE: 20170612
